FAERS Safety Report 5216470-5 (Version None)
Quarter: 2007Q1

REPORT INFORMATION
  Report Type: 
  Country: None (occurrence: None)
  Receive Date: 20070123
  Receipt Date: 20070112
  Transmission Date: 20070707
  Serious: Yes (Other)
  Sender: FDA-Public Use
  Company Number: JP-MERCK-0701USA03138

PATIENT
  Sex: Female

DRUGS (4)
  1. FOSAMAX [Suspect]
     Indication: OSTEOPOROSIS
     Route: 048
     Dates: start: 20060101, end: 20060101
  2. FOSAMAX [Suspect]
     Route: 048
  3. TANKARU [Concomitant]
     Route: 048
     Dates: end: 20060101
  4. ONEALFA [Concomitant]
     Route: 048
     Dates: end: 20060101

REACTIONS (1)
  - GASTROENTERITIS [None]
